FAERS Safety Report 10577534 (Version 4)
Quarter: 2015Q3

REPORT INFORMATION
  Report Type: Report from Study
  Country: US (occurrence: US)
  Receive Date: 20141111
  Receipt Date: 20150902
  Transmission Date: 20151125
  Serious: No
  Sender: FDA-Public Use
  Company Number: US-GILEAD-2014-0121792

PATIENT
  Age: 57 Year
  Sex: Female

DRUGS (15)
  1. SENSIPAR [Concomitant]
     Active Substance: CINACALCET HYDROCHLORIDE
  2. TEMAZEPAM. [Concomitant]
     Active Substance: TEMAZEPAM
  3. PROCTOZONE HC [Concomitant]
     Active Substance: HYDROCORTISONE
  4. VITAMIN D3 [Concomitant]
     Active Substance: CHOLECALCIFEROL
  5. VIREAD [Concomitant]
     Active Substance: TENOFOVIR DISOPROXIL FUMARATE
  6. MOMETASONE FUROATE. [Concomitant]
     Active Substance: MOMETASONE FUROATE
  7. ONDANSETRON [Concomitant]
     Active Substance: ONDANSETRON
  8. NEOSPORIN [Concomitant]
     Active Substance: BACITRACIN ZINC\NEOMYCIN SULFATE\POLYMYXIN B SULFATE
  9. OMEPRAZOLE. [Concomitant]
     Active Substance: OMEPRAZOLE
  10. EDURANT [Concomitant]
     Active Substance: RILPIVIRINE HYDROCHLORIDE
  11. AMBRISENTAN [Suspect]
     Active Substance: AMBRISENTAN
     Indication: PULMONARY ARTERIAL HYPERTENSION
     Dosage: 5 MG, QD
     Route: 065
     Dates: start: 20140807
  12. ACYCLOVIR                          /00587301/ [Concomitant]
     Active Substance: ACYCLOVIR
  13. ADCIRCA [Suspect]
     Active Substance: TADALAFIL
     Indication: PRODUCT USED FOR UNKNOWN INDICATION
     Route: 065
  14. TRAMADOL. [Concomitant]
     Active Substance: TRAMADOL
  15. RENVELA [Concomitant]
     Active Substance: SEVELAMER CARBONATE

REACTIONS (6)
  - Headache [Recovered/Resolved]
  - Fall [Recovered/Resolved]
  - Epistaxis [Recovered/Resolved]
  - Vision blurred [Recovered/Resolved]
  - Mouth haemorrhage [Recovered/Resolved]
  - Dizziness [Recovered/Resolved]

NARRATIVE: CASE EVENT DATE: 20140918
